FAERS Safety Report 5444078-5 (Version None)
Quarter: 2007Q3

REPORT INFORMATION
  Report Type: 
  Country: None (occurrence: None)
  Receive Date: 20070831
  Receipt Date: 20070823
  Transmission Date: 20080115
  Serious: Yes (Other)
  Sender: FDA-Public Use
  Company Number: S07-USA-03586-01

PATIENT
  Age: 73 Year
  Sex: Male

DRUGS (9)
  1. NAMENDA [Suspect]
     Indication: PARKINSON'S DISEASE
     Dosage: 5 MG BID PO
     Route: 048
     Dates: start: 20070807, end: 20070811
  2. NAMENDA [Suspect]
     Indication: PARKINSON'S DISEASE
     Dosage: 5 MG QD PO
     Route: 048
     Dates: start: 20070816
  3. LUNSETA (ESZOPICLONE) [Suspect]
     Indication: INSOMNIA
  4. ATIVAN [Concomitant]
  5. SEROQUEL [Concomitant]
  6. SINEMET [Concomitant]
  7. REQUIP [Concomitant]
  8. COMTAN [Concomitant]
  9. STALEVO (CARBIDOPA, LEVODOPA AND ENTACAPONE) [Concomitant]

REACTIONS (3)
  - AGGRESSION [None]
  - DRUG INTERACTION [None]
  - NIGHTMARE [None]
